FAERS Safety Report 6193102-3 (Version None)
Quarter: 2009Q2

REPORT INFORMATION
  Report Type: 
  Country: None (occurrence: None)
  Receive Date: 20090514
  Receipt Date: 20090514
  Transmission Date: 20091009
  Serious: No
  Sender: FDA-Public Use
  Company Number: None

PATIENT
  Age: 65 Year
  Sex: Female
  Weight: 53.0709 kg

DRUGS (1)
  1. REMICADE [Suspect]
     Indication: CROHN'S DISEASE
     Dosage: IV
     Route: 042
     Dates: start: 20020401, end: 20081101

REACTIONS (4)
  - DYSPHAGIA [None]
  - MOTOR NEURONE DISEASE [None]
  - MUSCULAR WEAKNESS [None]
  - SPEECH DISORDER [None]
